FAERS Safety Report 19481116 (Version 2)
Quarter: 2021Q3

REPORT INFORMATION
  Report Type: Spontaneous
  Country: US (occurrence: US)
  Receive Date: 20210630
  Receipt Date: 20210713
  Transmission Date: 20211014
  Serious: Yes (Other)
  Sender: FDA-Public Use
  Company Number: US-ABBVIE-21K-163-3965525-00

PATIENT
  Sex: Female
  Weight: 61.74 kg

DRUGS (6)
  1. CREON [Suspect]
     Active Substance: PANCRELIPASE AMYLASE\PANCRELIPASE LIPASE\PANCRELIPASE PROTEASE
     Route: 048
     Dates: start: 20210618
  2. PFIZER?BIONTECH COVID?19 VACCINE [Concomitant]
     Active Substance: TOZINAMERAN
     Dosage: PFIZER MANUFACTURER
     Route: 030
     Dates: start: 20210207, end: 20210207
  3. PFIZER?BIONTECH COVID?19 VACCINE [Concomitant]
     Active Substance: TOZINAMERAN
     Indication: COVID-19 IMMUNISATION
     Dosage: PFIZER MANUFACTURER
     Route: 030
     Dates: start: 20210127, end: 20210127
  4. OMEPRAZOLE. [Concomitant]
     Active Substance: OMEPRAZOLE
     Indication: HYPERCHLORHYDRIA
  5. LETROZOLE. [Concomitant]
     Active Substance: LETROZOLE
     Indication: BREAST CANCER
  6. CREON [Suspect]
     Active Substance: PANCRELIPASE AMYLASE\PANCRELIPASE LIPASE\PANCRELIPASE PROTEASE
     Indication: PANCREATIC FAILURE
     Route: 048
     Dates: start: 2007, end: 20210618

REACTIONS (5)
  - Breast cancer female [Not Recovered/Not Resolved]
  - Feeding disorder [Recovered/Resolved]
  - Intentional product misuse [Unknown]
  - Fatigue [Recovered/Resolved]
  - Hormone receptor positive breast cancer [Not Recovered/Not Resolved]

NARRATIVE: CASE EVENT DATE: 2019
